FAERS Safety Report 12488518 (Version 2)
Quarter: 2016Q3

REPORT INFORMATION
  Report Type: Spontaneous
  Country: JP (occurrence: JP)
  Receive Date: 20160622
  Receipt Date: 20160721
  Transmission Date: 20161109
  Serious: Yes (Other)
  Sender: FDA-Public Use
  Company Number: JP-PFIZER INC-2016303769

PATIENT
  Age: 50 Year
  Sex: Male
  Weight: 80.4 kg

DRUGS (5)
  1. VFEND [Suspect]
     Active Substance: VORICONAZOLE
     Indication: FUNGAL INFECTION
     Dosage: 200 MG, 2X/DAY
     Route: 048
     Dates: start: 20160105
  2. DAUNOMYCIN /00128202/ [Suspect]
     Active Substance: DAUNORUBICIN HYDROCHLORIDE
     Indication: NEOPLASM MALIGNANT
     Dosage: 100 MG, 1X/DAY
     Route: 041
     Dates: start: 20151110, end: 20160312
  3. NOVANTRONE [Suspect]
     Active Substance: MITOXANTRONE HYDROCHLORIDE
     Indication: NEOPLASM MALIGNANT
     Dosage: 13 MG, 1X/DAY
     Route: 041
     Dates: start: 20160126, end: 20160128
  4. CYLOCIDE [Suspect]
     Active Substance: CYTARABINE
     Indication: NEOPLASM MALIGNANT
     Dosage: 200 TO 4000 MG ONCE OR TWICE DAILY
     Route: 041
     Dates: start: 20151118, end: 20160501
  5. VFEND [Suspect]
     Active Substance: VORICONAZOLE
     Indication: FUNGAL INFECTION
     Dosage: 200 MG, 2X/DAY
     Route: 041
     Dates: start: 20151225, end: 20160104

REACTIONS (6)
  - General physical health deterioration [None]
  - Endophthalmitis [Recovering/Resolving]
  - Sepsis [None]
  - Cardiac failure [None]
  - Mycotic endophthalmitis [None]
  - Bone marrow failure [None]

NARRATIVE: CASE EVENT DATE: 20160520
